FAERS Safety Report 5084345-0 (Version None)
Quarter: 2006Q3

REPORT INFORMATION
  Report Type: 
  Country: None (occurrence: None)
  Receive Date: 20060821
  Receipt Date: 20060808
  Transmission Date: 20061208
  Serious: Yes (Other)
  Sender: FDA-Public Use
  Company Number: PHBS2006US12098

PATIENT
  Age: 58 Year
  Sex: Female

DRUGS (8)
  1. ZOLEDRONATE [Suspect]
     Indication: BREAST CANCER METASTATIC
     Dosage: 4 MG, QMO
  2. PAMIDRONATE DISODIUM [Suspect]
     Indication: BREAST CANCER METASTATIC
     Dosage: 90 MG, QMO
     Route: 042
  3. DOCETAXEL [Concomitant]
  4. ADRIAMYCIN PFS [Concomitant]
  5. CYTOXAN [Concomitant]
  6. PACLITAXEL [Concomitant]
  7. ARIMIDEX [Concomitant]
  8. FEMARA [Concomitant]

REACTIONS (6)
  - BONE DEBRIDEMENT [None]
  - DENTAL DISCOMFORT [None]
  - ORAL DISCHARGE [None]
  - OSTEOLYSIS [None]
  - OSTEONECROSIS [None]
  - SINUSITIS [None]
